FAERS Safety Report 24015451 (Version 1)
Quarter: 2024Q2

REPORT INFORMATION
  Report Type: Spontaneous
  Country: US (occurrence: None)
  Receive Date: 20240626
  Receipt Date: 20240626
  Transmission Date: 20240716
  Serious: Yes (Other)
  Sender: FDA-Public Use
  Company Number: None

PATIENT
  Age: 46 Year
  Sex: Female
  Weight: 63 kg

DRUGS (7)
  1. TRINTELLIX [Suspect]
     Active Substance: VORTIOXETINE HYDROBROMIDE
     Indication: Depression
     Dosage: FREQUENCY : DAILY;?
     Route: 048
     Dates: start: 20240522, end: 20240612
  2. Wellbutrin XL 150mg once daily [Concomitant]
     Dates: start: 20181230
  3. Lexapro 10-20mg once daily [Concomitant]
     Dates: start: 20121025, end: 20240401
  4. Pantoprazole 40mg once daily [Concomitant]
     Dates: start: 20240602, end: 20240607
  5. Pantoprazole 40mg twice daily [Concomitant]
     Dates: start: 20240607
  6. Famotidine 40mg once daily [Concomitant]
     Dates: start: 20230101
  7. Esomeprazole 40mg once daily [Concomitant]
     Dates: start: 20190101, end: 20240602

REACTIONS (5)
  - Pruritus [None]
  - Gastrooesophageal reflux disease [None]
  - Cough [None]
  - Chest pain [None]
  - Therapy cessation [None]
